FAERS Safety Report 19420917 (Version 4)
Quarter: 2024Q2

REPORT INFORMATION
  Report Type: Report from Study
  Country: AU (occurrence: AU)
  Receive Date: 20210616
  Receipt Date: 20240601
  Transmission Date: 20240716
  Serious: Yes (Other)
  Sender: FDA-Public Use
  Company Number: AU-ABBVIE-21K-008-3951552-00

PATIENT
  Age: 72 Year
  Sex: Male
  Weight: 84 kg

DRUGS (5)
  1. UPADACITINIB [Suspect]
     Active Substance: UPADACITINIB
     Indication: Rheumatoid arthritis
     Route: 048
  2. METHOTREXATE [Concomitant]
     Active Substance: METHOTREXATE
     Indication: Product used for unknown indication
     Route: 048
     Dates: start: 2012
  3. LYRICA [Concomitant]
     Active Substance: PREGABALIN
     Indication: Sciatica
     Route: 048
     Dates: start: 20210602
  4. LYRICA [Concomitant]
     Active Substance: PREGABALIN
     Indication: Sciatica
     Route: 048
     Dates: start: 202007, end: 20210602
  5. METFORMIN HYDROCHLORIDE [Concomitant]
     Active Substance: METFORMIN HYDROCHLORIDE
     Indication: Type 2 diabetes mellitus
     Dates: start: 2005

REACTIONS (8)
  - Actinic keratosis [Recovered/Resolved]
  - Cancer surgery [Recovered/Resolved]
  - Skin neoplasm excision [Recovered/Resolved]
  - Cyst removal [Recovered/Resolved]
  - Wound [Recovered/Resolved]
  - Abscess [Recovered/Resolved]
  - Folliculitis [Recovered/Resolved]
  - Hypercholesterolaemia [Not Recovered/Not Resolved]

NARRATIVE: CASE EVENT DATE: 20210521
